FAERS Safety Report 20011146 (Version 1)
Quarter: 2021Q4

REPORT INFORMATION
  Report Type: Spontaneous
  Country: US (occurrence: US)
  Receive Date: 20211029
  Receipt Date: 20211029
  Transmission Date: 20220304
  Serious: No
  Sender: FDA-Public Use
  Company Number: 2021A789529

PATIENT
  Sex: Female

DRUGS (2)
  1. PRILOSEC [Suspect]
     Active Substance: OMEPRAZOLE MAGNESIUM
     Indication: Skin infection
     Dosage: UNKNOWN
     Route: 048
  2. NUZYRA [Concomitant]
     Active Substance: OMADACYCLINE
     Indication: Skin infection
     Dosage: UNKNOWN
     Route: 065

REACTIONS (3)
  - Abdominal pain upper [Unknown]
  - Nausea [Unknown]
  - Product communication issue [Unknown]
